FAERS Safety Report 11560172 (Version 2)
Quarter: 2015Q4

REPORT INFORMATION
  Report Type: Spontaneous
  Country: BR (occurrence: BR)
  Receive Date: 20150928
  Receipt Date: 20151007
  Transmission Date: 20160304
  Serious: Yes (Other)
  Sender: FDA-Public Use
  Company Number: PHHY2015BR116401

PATIENT
  Sex: Male
  Weight: 74 kg

DRUGS (5)
  1. PROLOPA HBS [Suspect]
     Active Substance: BENSERAZIDE\LEVODOPA
     Indication: PARKINSON^S DISEASE
     Dosage: 1 DF, QD
     Route: 048
     Dates: start: 2007
  2. PROLOPA [Suspect]
     Active Substance: BENSERAZIDE\LEVODOPA
     Indication: PARKINSON^S DISEASE
     Dosage: 5 DF, QD
     Route: 048
     Dates: start: 2007
  3. STALEVO [Suspect]
     Active Substance: CARBIDOPA\ENTACAPONE\LEVODOPA
     Dosage: 1 DF, BID (50/12.5/200 MG) (IN THE MORNING AT 10.00 AM AND AT 4.00 PM)
     Route: 048
     Dates: start: 20150911
  4. STALEVO [Suspect]
     Active Substance: CARBIDOPA\ENTACAPONE\LEVODOPA
     Indication: PARKINSON^S DISEASE
     Dosage: 2 DF, QD (200/50/200 MG)
     Route: 048
  5. STALEVO [Suspect]
     Active Substance: CARBIDOPA\ENTACAPONE\LEVODOPA
     Dosage: 2 DF, QD (100/25/200 )
     Route: 048
     Dates: start: 20150926

REACTIONS (6)
  - Incorrect dose administered [Not Recovered/Not Resolved]
  - Monoplegia [Not Recovered/Not Resolved]
  - Fall [Not Recovered/Not Resolved]
  - Gait disturbance [Recovered/Resolved]
  - Hypokinesia [Not Recovered/Not Resolved]
  - Tremor [Recovered/Resolved]
